FAERS Safety Report 9266724 (Version 1)
Quarter: 2013Q2

REPORT INFORMATION
  Report Type: Spontaneous
  Country: US (occurrence: US)
  Receive Date: 20130502
  Receipt Date: 20130502
  Transmission Date: 20140414
  Serious: Yes (Other)
  Sender: FDA-Public Use
  Company Number: US-PFIZER INC-2013136547

PATIENT
  Age: 41 Year
  Sex: Male
  Weight: 66.21 kg

DRUGS (1)
  1. LYRICA [Suspect]
     Indication: NERVE INJURY
     Dosage: UNK
     Route: 048
     Dates: start: 20130426, end: 20130427

REACTIONS (2)
  - Road traffic accident [Unknown]
  - Somnolence [Unknown]
